FAERS Safety Report 5778090-3 (Version None)
Quarter: 2008Q2

REPORT INFORMATION
  Report Type: 
  Country: None (occurrence: None)
  Receive Date: 20080619
  Receipt Date: 20080609
  Transmission Date: 20081010
  Serious: Yes (Other)
  Sender: FDA-Public Use
  Company Number: ES-ELI_LILLY_AND_COMPANY-ES200806002028

PATIENT
  Age: 76 Year
  Sex: Female

DRUGS (1)
  1. FORTEO [Suspect]
     Indication: SPINAL OSTEOARTHRITIS
     Dosage: 20 UG, UNKNOWN
     Route: 058
     Dates: start: 20070605, end: 20080428

REACTIONS (1)
  - BLOOD ALKALINE PHOSPHATASE INCREASED [None]
